FAERS Safety Report 9626816 (Version 1)
Quarter: 2013Q4

REPORT INFORMATION
  Report Type: Spontaneous
  Country: US (occurrence: US)
  Receive Date: 20131016
  Receipt Date: 20131016
  Transmission Date: 20140711
  Serious: Yes (Hospitalization, Other)
  Sender: FDA-Public Use
  Company Number: US-PFIZER INC-2013292273

PATIENT
  Age: 44 Month
  Sex: Male

DRUGS (4)
  1. PHENYTOIN [Suspect]
     Indication: CONVULSION
     Dosage: 9 MG/KG PER 24 HOURS
  2. PHENYTOIN [Suspect]
     Dosage: 11 MG/KG PER 24 HOURS
  3. MEBARAL [Concomitant]
     Indication: CONVULSION
     Dosage: 6 MG/KG PER 24 HOURS
  4. MYSOLINE [Concomitant]
     Indication: CONVULSION
     Dosage: 13 MG/KG PER 24 HOURS

REACTIONS (4)
  - Toxicity to various agents [Recovered/Resolved]
  - Choreoathetosis [Recovered/Resolved]
  - Nystagmus [Recovered/Resolved]
  - Ataxia [Recovered/Resolved]
